FAERS Safety Report 9991832 (Version 1)
Quarter: 2014Q1

REPORT INFORMATION
  Report Type: Spontaneous
  Country: US (occurrence: US)
  Receive Date: 20140310
  Receipt Date: 20140310
  Transmission Date: 20141002
  Serious: Yes (Other)
  Sender: FDA-Public Use
  Company Number: US-BAYER-2014-033682

PATIENT
  Age: 15 Year
  Sex: Female
  Weight: 85 kg

DRUGS (7)
  1. YASMIN [Suspect]
  2. TEGRETOL [Concomitant]
  3. HYDROCODONE [Concomitant]
  4. ATIVAN [Concomitant]
  5. FENTANYL [Concomitant]
  6. LORAZEPAM [Concomitant]
  7. VICODIN [Concomitant]
     Indication: HEADACHE

REACTIONS (1)
  - Cerebral venous thrombosis [Recovered/Resolved]
